FAERS Safety Report 8070621-6 (Version None)
Quarter: 2012Q1

REPORT INFORMATION
  Report Type: 
  Country: None (occurrence: None)
  Receive Date: 20120125
  Receipt Date: 20120118
  Transmission Date: 20120608
  Serious: Yes (Hospitalization)
  Sender: FDA-Public Use
  Company Number: PHEH2012US001542

PATIENT
  Sex: Female
  Weight: 57 kg

DRUGS (6)
  1. GILENYA [Suspect]
     Indication: MULTIPLE SCLEROSIS
     Dosage: 0.5 MG, DAILY
     Route: 048
     Dates: start: 20110503, end: 20120101
  2. LYRICA [Concomitant]
     Dosage: 50 MG, UNK
     Route: 048
  3. PROZAC [Concomitant]
     Dosage: 10 MG, UNK
     Route: 048
  4. ONDANSETRON HCL [Concomitant]
     Dosage: 4 MG, UNK
     Route: 048
  5. BACLOFEN [Concomitant]
     Dosage: 10 MG, UNK
     Route: 048
  6. ALPRAZOLAM [Concomitant]
     Dosage: 0.5 MG, UNK
     Route: 048

REACTIONS (11)
  - DYSPHONIA [None]
  - DYSPHAGIA [None]
  - FATIGUE [None]
  - COUGH [None]
  - BRONCHITIS [None]
  - HEMIPARESIS [None]
  - DYSPNOEA [None]
  - UPPER RESPIRATORY TRACT INFECTION [None]
  - RESPIRATORY DISORDER [None]
  - PULMONARY FUNCTION TEST ABNORMAL [None]
  - VITAL CAPACITY DECREASED [None]
